FAERS Safety Report 5622323-0 (Version None)
Quarter: 2008Q1

REPORT INFORMATION
  Report Type: 
  Country: None (occurrence: None)
  Receive Date: 20080206
  Receipt Date: 20080125
  Transmission Date: 20080703
  Serious: Yes (Death, Hospitalization)
  Sender: FDA-Public Use
  Company Number: 2007-04260

PATIENT
  Age: 65 Year
  Sex: Female
  Weight: 35 kg

DRUGS (19)
  1. VELCADE [Suspect]
     Indication: MULTIPLE MYELOMA
     Dosage: 1.65 MG, INTRAVENOUS : 1.29 MG, INTRAVENOUS
     Route: 042
     Dates: start: 20070605, end: 20070608
  2. VELCADE [Suspect]
     Indication: MULTIPLE MYELOMA
     Dosage: 1.65 MG, INTRAVENOUS : 1.29 MG, INTRAVENOUS
     Route: 042
     Dates: start: 20070619, end: 20070622
  3. DEXAMETHASONE TAB [Concomitant]
  4. FUNGUARD [Concomitant]
  5. MEROPEN (MEROPENEM) [Concomitant]
  6. TARGOCID [Concomitant]
  7. NEU-UP (NARTOGRASTIM) [Concomitant]
  8. MINOCYCLINE HCL [Concomitant]
  9. IMMUNE GLOBULIN (HUMAN) [Concomitant]
  10. ASPARA POTASSIUM [Concomitant]
  11. ALFAROL (ALFACALCIDOL) [Concomitant]
  12. LANSOPRAZOLE [Concomitant]
  13. SELBEX (TEPRENONE) [Concomitant]
  14. ENTOMOL [Concomitant]
  15. BAKTAR (SULFAMETHOXAZOLE, TRIMETHOPRIM) [Concomitant]
  16. VANCOMYCIN [Concomitant]
  17. BORRAZA-G (LIDOCAINE, TRIBENOSIDE) [Concomitant]
  18. FAMOTIDINE [Concomitant]
  19. ESPO (EPOETIN ALFA) [Concomitant]

REACTIONS (10)
  - CYTOMEGALOVIRUS INFECTION [None]
  - DIARRHOEA [None]
  - DISEASE PROGRESSION [None]
  - GASTRITIS [None]
  - HYPOKALAEMIA [None]
  - MALAISE [None]
  - NASOPHARYNGITIS [None]
  - ORTHOSTATIC HYPOTENSION [None]
  - SHOCK [None]
  - VENTRICULAR EXTRASYSTOLES [None]
